FAERS Safety Report 7605719-7 (Version None)
Quarter: 2011Q3

REPORT INFORMATION
  Report Type: 
  Country: None (occurrence: None)
  Receive Date: 20110713
  Receipt Date: 20110706
  Transmission Date: 20111222
  Serious: Yes (Other)
  Sender: FDA-Public Use
  Company Number: BR-PFIZER INC-2011152484

PATIENT
  Sex: Female

DRUGS (1)
  1. PROVERA [Suspect]
     Indication: AMENORRHOEA
     Dosage: 10 MG, 1X/DAY
     Route: 048
     Dates: end: 20110705

REACTIONS (4)
  - NAUSEA [None]
  - ASTHENIA [None]
  - DIZZINESS [None]
  - HEADACHE [None]
